FAERS Safety Report 9805933 (Version 6)
Quarter: 2014Q2

REPORT INFORMATION
  Report Type: Report from Study
  Country: CL (occurrence: CL)
  Receive Date: 20140109
  Receipt Date: 20140602
  Transmission Date: 20141212
  Serious: Yes (Death)
  Sender: FDA-Public Use
  Company Number: CL-ROCHE-1329644

PATIENT
  Age: 68 Year
  Sex: Female
  Weight: 69 kg

DRUGS (16)
  1. TOCILIZUMAB [Suspect]
     Indication: RHEUMATOID ARTHRITIS
     Dosage: DATE OF MOST RECENT DOSE TOCILIZUMAB PRIOR TO AE: 07/OCT/2013 AT A DOSE OF 8 MG/KG
     Route: 042
     Dates: start: 20130225
  2. METHOTREXATE [Concomitant]
     Indication: RHEUMATOID ARTHRITIS
     Route: 048
     Dates: start: 20111103
  3. PREDNISONE [Concomitant]
     Indication: RHEUMATOID ARTHRITIS
     Route: 048
     Dates: start: 20081201
  4. CELECOXIB [Concomitant]
     Indication: RHEUMATOID ARTHRITIS
     Route: 048
     Dates: start: 20081201
  5. PREGABALINE [Concomitant]
     Indication: RHEUMATOID ARTHRITIS
     Route: 048
     Dates: start: 20130301, end: 20130310
  6. PARACETAMOL [Concomitant]
     Indication: RHEUMATOID ARTHRITIS
     Route: 048
     Dates: start: 20130311, end: 20130326
  7. PARACETAMOL [Concomitant]
     Indication: NASOPHARYNGITIS
     Route: 048
     Dates: start: 20130512, end: 20130517
  8. LOSARTAN [Concomitant]
     Indication: HYPERTENSION
     Route: 048
     Dates: start: 20130419, end: 20130515
  9. LOSARTAN [Concomitant]
     Route: 048
     Dates: start: 20130516
  10. DEPO-MEDROL [Concomitant]
     Indication: RHEUMATOID ARTHRITIS
     Dosage: SINGLE DOSE
     Route: 014
     Dates: start: 20130402, end: 20130402
  11. TOBRAMYCINE [Concomitant]
     Route: 047
     Dates: start: 20130617
  12. DEXAMETHASONE [Concomitant]
     Route: 047
     Dates: start: 20130617
  13. DORZOLAMIDE [Concomitant]
     Route: 047
     Dates: start: 20130617
  14. ATENOLOL [Concomitant]
     Indication: HYPERTENSION
     Route: 048
     Dates: start: 20130916
  15. FOLIC ACID [Concomitant]
     Indication: PROPHYLAXIS
     Route: 048
     Dates: start: 20081201
  16. MOXIFLOXACIN [Concomitant]
     Route: 047
     Dates: start: 20130617

REACTIONS (3)
  - Acute pulmonary oedema [Fatal]
  - Hypertensive crisis [Fatal]
  - Cardiac failure [Fatal]
